FAERS Safety Report 9562109 (Version 1)
Quarter: 2013Q3

REPORT INFORMATION
  Report Type: Spontaneous
  Country: US (occurrence: None)
  Receive Date: 20130830
  Receipt Date: 20130830
  Transmission Date: 20140515
  Serious: Yes (Death)
  Sender: FDA-Public Use
  Company Number: AMG201203121

PATIENT
  Age: 90 Year
  Sex: Male

DRUGS (9)
  1. FERAHEME (FERUMOXYTOL) INJECTION, 510MG [Suspect]
     Indication: IRON DEFICIENCY ANAEMIA
     Route: 042
     Dates: start: 20121003, end: 20121003
  2. DIGOXIN [Concomitant]
  3. PROSCAR [Concomitant]
  4. LEVOBUNOLOL [Concomitant]
  5. MULTIVITAMINS PLUS IRON (FERROUS SULFATE, VITAMINS NOS) [Concomitant]
  6. LOSARTAN/HYDROCHLOORTHIAZIDE (HYDROCHLOROTHIAZIDE, LOSARTAN POTASSIUM) [Concomitant]
  7. PROTONIX (PANTOPRAZOLE SODIUM SESQUIHYDRATE) [Concomitant]
  8. ZOCOR (SIMVASTATIN) [Concomitant]
  9. FLOMAX (MORNIFLUMATE) [Concomitant]

REACTIONS (4)
  - Anaphylactic reaction [None]
  - Hypotension [None]
  - Unresponsive to stimuli [None]
  - Cardio-respiratory arrest [None]
